FAERS Safety Report 8873394 (Version 1)
Quarter: 2012Q4

REPORT INFORMATION
  Report Type: 
  Country: US (occurrence: US)
  Receive Date: 20121023
  Receipt Date: 20121023
  Transmission Date: 20130627
  Serious: No
  Sender: FDA-Public Use
  Company Number: US-ASTELLAS-2012US007070

PATIENT
  Age: 38 Year
  Sex: Male

DRUGS (1)
  1. LEXISCAN [Suspect]
     Indication: PRODUCT USED FOR UNKNOWN INDICATION
     Dosage: Total Dose
     Route: 042
     Dates: start: 20120816, end: 20120816

REACTIONS (1)
  - Infusion site extravasation [Unknown]
